FAERS Safety Report 7455563-9 (Version None)
Quarter: 2011Q2

REPORT INFORMATION
  Report Type: 
  Country: None (occurrence: None)
  Receive Date: 20110503
  Receipt Date: 20110423
  Transmission Date: 20111010
  Serious: Yes (Hospitalization)
  Sender: FDA-Public Use
  Company Number: DE-ROCHE-757451

PATIENT
  Age: 77 Year
  Sex: Female
  Weight: 51 kg

DRUGS (1)
  1. IBANDRONIC ACID [Suspect]
     Dosage: LAST DOSE PRIOR TO EVENT ON 18 JAN 2011.
     Route: 042
     Dates: start: 20100511

REACTIONS (1)
  - DISORIENTATION [None]
